FAERS Safety Report 11566654 (Version 2)
Quarter: 2015Q4

REPORT INFORMATION
  Report Type: Spontaneous
  Country: US (occurrence: US)
  Receive Date: 20150916
  Receipt Date: 20151120
  Transmission Date: 20160304
  Serious: No
  Sender: FDA-Public Use
  Company Number: US-ELI_LILLY_AND_COMPANY-US200906004003

PATIENT
  Age: 75 Year
  Sex: Female

DRUGS (6)
  1. FORTEO [Suspect]
     Active Substance: TERIPARATIDE
     Dosage: UNK, QD
     Route: 065
     Dates: start: 2010, end: 2010
  2. TOPROL XL [Concomitant]
     Active Substance: METOPROLOL SUCCINATE
     Indication: BLOOD PRESSURE MEASUREMENT
     Dosage: 25 MG, UNK
  3. FORTEO [Suspect]
     Active Substance: TERIPARATIDE
     Dosage: UNK, QD
     Route: 065
     Dates: end: 20130508
  4. HYDROCHLOORTHIAZIDE [Concomitant]
     Active Substance: HYDROCHLOROTHIAZIDE
  5. FORTEO [Suspect]
     Active Substance: TERIPARATIDE
     Indication: OSTEOPOROSIS
     Dosage: UNK UNK, UNKNOWN
     Route: 065
     Dates: start: 20090610
  6. FORTEO [Suspect]
     Active Substance: TERIPARATIDE
     Dosage: UNK UNK, UNKNOWN
     Route: 065
     Dates: start: 2009

REACTIONS (17)
  - Pain [Unknown]
  - Medication error [Unknown]
  - Influenza like illness [Unknown]
  - Atrial fibrillation [Not Recovered/Not Resolved]
  - Cough [Unknown]
  - Blood pressure increased [Not Recovered/Not Resolved]
  - Nasopharyngitis [Unknown]
  - Spinal compression fracture [Unknown]
  - Varicose vein [Not Recovered/Not Resolved]
  - Vomiting [Unknown]
  - Dizziness [Recovering/Resolving]
  - Laryngitis [Unknown]
  - Back pain [Unknown]
  - Pain in extremity [Unknown]
  - Depression [Unknown]
  - Headache [Not Recovered/Not Resolved]
  - Medication error [Unknown]

NARRATIVE: CASE EVENT DATE: 2009
